FAERS Safety Report 5728356-8 (Version None)
Quarter: 2008Q2

REPORT INFORMATION
  Report Type: 
  Country: None (occurrence: None)
  Receive Date: 20080506
  Receipt Date: 20080424
  Transmission Date: 20081010
  Serious: Yes (Hospitalization, Other)
  Sender: FDA-Public Use
  Company Number: PHHY2008BR06750

PATIENT

DRUGS (5)
  1. FORASEQ [Suspect]
     Indication: ASTHMA
     Dosage: QID OR TID AS NEED
     Dates: start: 20010101
  2. AZITHROMYCIN [Concomitant]
     Indication: LUNG INFECTION
     Dosage: 1/2 TAB QOD
     Route: 048
     Dates: start: 20071201
  3. METRONIDAZOLE HCL [Concomitant]
     Indication: GASTROINTESTINAL DISORDER
     Dosage: 20 MG, BID
     Dates: start: 20040101
  4. ENALAPRIL [Concomitant]
     Indication: BLOOD PRESSURE INCREASED
     Dosage: 10 MG, QD
     Route: 048
     Dates: start: 20060101
  5. HYDROCHLOROTHIAZIDE [Concomitant]
     Indication: BLOOD PRESSURE INCREASED
     Dosage: 50 MG, QD
     Route: 048
     Dates: start: 20060101

REACTIONS (8)
  - BRONCHIECTASIS [None]
  - CONDITION AGGRAVATED [None]
  - DRUG INEFFECTIVE [None]
  - DYSPNOEA [None]
  - HYSTERECTOMY [None]
  - MECHANICAL VENTILATION [None]
  - RESPIRATORY ARREST [None]
  - RESPIRATORY TRACT INFECTION [None]
